FAERS Safety Report 10085781 (Version 1)
Quarter: 2014Q2

REPORT INFORMATION
  Report Type: Spontaneous
  Country: US (occurrence: US)
  Receive Date: 20140418
  Receipt Date: 20140418
  Transmission Date: 20141212
  Serious: No
  Sender: FDA-Public Use
  Company Number: US-PFIZER INC-2014109352

PATIENT
  Age: 62 Year
  Sex: Male
  Weight: 77.1 kg

DRUGS (2)
  1. LYRICA [Suspect]
     Indication: NEURALGIA
     Dosage: 50 MG, 4X/DAY
     Route: 048
     Dates: start: 20140407, end: 20140414
  2. LYRICA [Suspect]
     Indication: HERPES ZOSTER

REACTIONS (1)
  - Peripheral swelling [Not Recovered/Not Resolved]
